FAERS Safety Report 16305382 (Version 2)
Quarter: 2019Q2

REPORT INFORMATION
  Report Type: Spontaneous
  Country: DE (occurrence: DE)
  Receive Date: 20190513
  Receipt Date: 20190625
  Transmission Date: 20190711
  Serious: Yes (Hospitalization)
  Sender: FDA-Public Use
  Company Number: DE-BAUSCH-BL-2019-013850

PATIENT
  Age: 79 Year
  Sex: Female

DRUGS (4)
  1. LISINOPRIL. [Interacting]
     Active Substance: LISINOPRIL
     Indication: ESSENTIAL HYPERTENSION
     Route: 065
  2. METOPROLOL. [Interacting]
     Active Substance: METOPROLOL
     Indication: ESSENTIAL HYPERTENSION
     Dosage: ZOK GALENIC FORMULATION
     Route: 065
  3. HYDROCHLOROTHIAZIDE. [Interacting]
     Active Substance: HYDROCHLOROTHIAZIDE
     Indication: ESSENTIAL HYPERTENSION
     Route: 065
  4. DICLOFENAC SODIUM. [Suspect]
     Active Substance: DICLOFENAC SODIUM
     Indication: OSTEOARTHRITIS
     Route: 065

REACTIONS (2)
  - Drug interaction [Unknown]
  - Renal impairment [Unknown]
